FAERS Safety Report 5306210-3 (Version None)
Quarter: 2007Q2

REPORT INFORMATION
  Report Type: 
  Country: None (occurrence: None)
  Receive Date: 20070424
  Receipt Date: 20070423
  Transmission Date: 20071010
  Serious: Yes (Hospitalization)
  Sender: FDA-Public Use
  Company Number: NL-BRISTOL-MYERS SQUIBB COMPANY-13757265

PATIENT
  Age: 43 Year
  Sex: Male

DRUGS (3)
  1. CISPLATIN [Suspect]
     Indication: OROPHARYNGEAL CANCER STAGE UNSPECIFIED
     Route: 042
  2. DEXAMETHASONE 0.5MG TAB [Suspect]
  3. RADIOTHERAPY [Concomitant]

REACTIONS (1)
  - DIABETIC HYPEROSMOLAR COMA [None]
